FAERS Safety Report 8505889-2 (Version None)
Quarter: 2012Q3

REPORT INFORMATION
  Report Type: 
  Country: None (occurrence: None)
  Receive Date: 20120706
  Receipt Date: 20120706
  Transmission Date: 20120928
  Serious: No
  Sender: FDA-Public Use
  Company Number: None

PATIENT
  Age: 37 Year
  Sex: Female
  Weight: 113.6 kg

DRUGS (1)
  1. AQUAFRESH ISO-ACTIVE GLAXOSMITHKLINE [Suspect]
     Dosage: SMALL AMT 1X BY MOUTH  ONE TIME
     Route: 048
     Dates: start: 20120628

REACTIONS (2)
  - GLOSSODYNIA [None]
  - ORAL DISCOMFORT [None]
